FAERS Safety Report 23969139 (Version 1)
Quarter: 2024Q2

REPORT INFORMATION
  Report Type: Report from Study
  Country: CA (occurrence: CA)
  Receive Date: 20240612
  Receipt Date: 20240612
  Transmission Date: 20240716
  Serious: Yes (Hospitalization, Other)
  Sender: FDA-Public Use
  Company Number: CA-ABBVIE-5791870

PATIENT
  Sex: Male

DRUGS (2)
  1. RINVOQ [Suspect]
     Active Substance: UPADACITINIB
     Indication: Dermatitis atopic
     Route: 048
  2. FILGRASTIM [Concomitant]
     Active Substance: FILGRASTIM
     Indication: Product used for unknown indication

REACTIONS (14)
  - Febrile neutropenia [Unknown]
  - Chills [Not Recovered/Not Resolved]
  - Oral candidiasis [Unknown]
  - Urethral injury [Unknown]
  - Neutrophil count decreased [Unknown]
  - Pain [Unknown]
  - Penile prosthesis insertion [Unknown]
  - Myalgia [Unknown]
  - Haematuria [Recovered/Resolved]
  - Penile erythema [Unknown]
  - Penile prosthesis removal [Unknown]
  - Implant site erosion [Unknown]
  - Bladder catheter removal [Unknown]
  - Bladder catheterisation [Unknown]

NARRATIVE: CASE EVENT DATE: 20240401
